FAERS Safety Report 5363776-5 (Version None)
Quarter: 2007Q2

REPORT INFORMATION
  Report Type: 
  Country: None (occurrence: None)
  Receive Date: 20070620
  Receipt Date: 20070607
  Transmission Date: 20071010
  Serious: Yes (Hospitalization)
  Sender: FDA-Public Use
  Company Number: US-KINGPHARMUSA00001-K200700743

PATIENT

DRUGS (1)
  1. ALTACE [Suspect]

REACTIONS (28)
  - ABDOMINAL PAIN [None]
  - ABDOMINAL PAIN UPPER [None]
  - ANAPHYLACTIC SHOCK [None]
  - ANXIETY [None]
  - ASTHENIA [None]
  - CHEST PAIN [None]
  - COLD SWEAT [None]
  - DEPRESSED MOOD [None]
  - DYSPNOEA [None]
  - EMOTIONAL DISTRESS [None]
  - EYE SWELLING [None]
  - FAT TISSUE INCREASED [None]
  - FATIGUE [None]
  - FLUSHING [None]
  - GENERAL PHYSICAL HEALTH DETERIORATION [None]
  - HEADACHE [None]
  - HYPERHIDROSIS [None]
  - LIP SWELLING [None]
  - LYMPHOEDEMA [None]
  - MYALGIA [None]
  - PALPITATIONS [None]
  - PANIC ATTACK [None]
  - SCAR [None]
  - SWOLLEN TONGUE [None]
  - URTICARIA [None]
  - VASCULAR INSUFFICIENCY [None]
  - VISION BLURRED [None]
  - WEIGHT INCREASED [None]
